FAERS Safety Report 11010262 (Version 1)
Quarter: 2015Q2

REPORT INFORMATION
  Report Type: Spontaneous
  Country: FR (occurrence: FR)
  Receive Date: 20150410
  Receipt Date: 20150410
  Transmission Date: 20150821
  Serious: Yes (Hospitalization)
  Sender: FDA-Public Use
  Company Number: FR-ACTAVIS-2015-08016

PATIENT
  Age: 74 Year
  Sex: Male

DRUGS (2)
  1. ESOMEPRAZOLE (UNKNOWN) [Suspect]
     Active Substance: ESOMEPRAZOLE
     Indication: HELICOBACTER INFECTION
     Dosage: 40 MG, DAILY
     Route: 065
     Dates: start: 20150129, end: 20150207
  2. PYLERA [Suspect]
     Active Substance: BISMUTH SUBCITRATE POTASSIUM\METRONIDAZOLE\TETRACYCLINE HYDROCHLORIDE
     Indication: HELICOBACTER INFECTION
     Dosage: 3 DF, QID
     Route: 048
     Dates: start: 20150129, end: 20150207

REACTIONS (2)
  - Arthralgia [Recovering/Resolving]
  - Cutaneous vasculitis [Recovering/Resolving]

NARRATIVE: CASE EVENT DATE: 20150207
